FAERS Safety Report 5291102-9 (Version None)
Quarter: 2007Q2

REPORT INFORMATION
  Report Type: 
  Country: None (occurrence: None)
  Receive Date: 20070402
  Receipt Date: 20070320
  Transmission Date: 20071010
  Serious: Yes (Other)
  Sender: FDA-Public Use
  Company Number: CHNY2006CA03148

PATIENT
  Age: 58 Year
  Sex: Female

DRUGS (14)
  1. HABITROL [Suspect]
     Indication: SMOKING CESSATION THERAPY
     Dosage: 21 MG, QD, TRANSDERMAL
     Route: 062
     Dates: start: 20061101
  2. SPIRIVA [Concomitant]
  3. SINGULAIR [Concomitant]
  4. ACTONEL [Concomitant]
  5. NEXIUM [Concomitant]
  6. ROVAN [Concomitant]
  7. FLOVENT [Concomitant]
  8. VENTOLIN/00139501/ (SALBUTAMOL) [Concomitant]
  9. EUROD [Concomitant]
  10. AMITRIPTYLINE HCL [Concomitant]
  11. NOVO-CLONIDINE (CLONIDINE HYDROCHLORIDE) [Concomitant]
  12. UNIPHYL [Concomitant]
  13. CALCIUM (CALCIUM) [Concomitant]
  14. VITAMIN B12 [Concomitant]

REACTIONS (3)
  - FATIGUE [None]
  - INSOMNIA [None]
  - SOMNOLENCE [None]
